FAERS Safety Report 18043017 (Version 3)
Quarter: 2022Q2

REPORT INFORMATION
  Report Type: Other
  Country: ES (occurrence: None)
  Receive Date: 20200720
  Receipt Date: 20220427
  Transmission Date: 20220721
  Serious: Yes (Other)
  Sender: FDA-Public Use
  Company Number: ES-ROCHE-2450503

PATIENT
  Age: 75 Year
  Sex: Female

DRUGS (3)
  1. PERTUZUMAB [Suspect]
     Active Substance: PERTUZUMAB
     Indication: Breast cancer
     Route: 042
     Dates: start: 20180905, end: 20190212
  2. TRASTUZUMAB [Suspect]
     Active Substance: TRASTUZUMAB
     Indication: Breast cancer
     Route: 058
     Dates: start: 20180905, end: 20190212
  3. TRASTUZUMAB [Suspect]
     Active Substance: TRASTUZUMAB
     Route: 058
     Dates: start: 20190725, end: 20190909

REACTIONS (3)
  - Left ventricular dysfunction [Recovered/Resolved]
  - Pulmonary hypertension [Recovered/Resolved]
  - Toxicity to various agents [Unknown]

NARRATIVE: CASE EVENT DATE: 20190225
